FAERS Safety Report 5936807-9 (Version None)
Quarter: 2008Q4

REPORT INFORMATION
  Report Type: 
  Country: None (occurrence: None)
  Receive Date: 20081029
  Receipt Date: 20081014
  Transmission Date: 20090506
  Serious: Yes (Death, Hospitalization)
  Sender: FDA-Public Use
  Company Number: 230356K08USA

PATIENT
  Age: 49 Year
  Sex: Female
  Weight: 44 kg

DRUGS (1)
  1. REBIF [Suspect]
     Indication: MULTIPLE SCLEROSIS
     Dosage: 44 MCG,  3 IN 1 WEEKS, SUBCUTANEOUS
     Route: 058
     Dates: start: 20070503, end: 20080101

REACTIONS (4)
  - ACUTE RESPIRATORY FAILURE [None]
  - PNEUMONIA [None]
  - SEPSIS [None]
  - VOMITING [None]
